FAERS Safety Report 5211924-X (Version None)
Quarter: 2007Q1

REPORT INFORMATION
  Report Type: 
  Country: None (occurrence: None)
  Receive Date: 20070118
  Receipt Date: 20070111
  Transmission Date: 20070707
  Serious: Yes (Hospitalization)
  Sender: FDA-Public Use
  Company Number: 2007AP00432

PATIENT
  Age: 44 Year
  Sex: Female

DRUGS (2)
  1. XYLOCAINE [Suspect]
     Indication: LOCAL ANAESTHESIA
     Route: 065
     Dates: start: 20061101, end: 20061101
  2. NEO VITACAIN [Concomitant]
     Indication: BACK PAIN
     Dates: start: 20060801

REACTIONS (2)
  - ASTHENIA [None]
  - MALAISE [None]
